FAERS Safety Report 4473645-0 (Version None)
Quarter: 2004Q3

REPORT INFORMATION
  Report Type: 
  Country: None (occurrence: None)
  Receive Date: 20040910
  Receipt Date: 20040524
  Transmission Date: 20050211
  Serious: No
  Sender: FDA-Public Use
  Company Number: 2004210237US

PATIENT
  Age: 51 Year
  Sex: Female

DRUGS (1)
  1. BEXTRA [Suspect]
     Indication: ARTHRALGIA
     Dosage: 20 MG, UNK, UNKNOWN
     Route: 065
     Dates: start: 20040408, end: 20040417

REACTIONS (7)
  - DIARRHOEA [None]
  - EYELID DISORDER [None]
  - MALAISE [None]
  - NAUSEA [None]
  - PHARYNGOLARYNGEAL PAIN [None]
  - RASH [None]
  - URTICARIA [None]
